FAERS Safety Report 9171833 (Version 1)
Quarter: 2013Q1

REPORT INFORMATION
  Report Type: Spontaneous
  Country: NL (occurrence: None)
  Receive Date: 20130313
  Receipt Date: 20130313
  Transmission Date: 20140127
  Serious: No
  Sender: FDA-Public Use
  Company Number: IMP_06610_2013

PATIENT
  Age: 55 Year
  Sex: Male

DRUGS (1)
  1. METFORMIN (METFORMIN) [Suspect]
     Indication: TYPE 2 DIABETES MELLITUS

REACTIONS (4)
  - Lactic acidosis [None]
  - Dehydration [None]
  - Renal failure acute [None]
  - Haemodialysis [None]
